FAERS Safety Report 6422990-8 (Version None)
Quarter: 2009Q4

REPORT INFORMATION
  Report Type: 
  Country: None (occurrence: None)
  Receive Date: 20091028
  Receipt Date: 20091016
  Transmission Date: 20100525
  Serious: Yes (Hospitalization, Other)
  Sender: FDA-Public Use
  Company Number: US022565

PATIENT
  Age: 46 Year
  Sex: Female
  Weight: 80 kg

DRUGS (15)
  1. ACTIQ [Suspect]
     Indication: CANCER PAIN
     Dosage: BU
     Route: 002
     Dates: start: 20071007
  2. FENTANYL [Suspect]
     Dosage: TRANSDERMAL
     Route: 062
     Dates: start: 20071005
  3. METHADONE HCL [Concomitant]
  4. GABAPENTIN [Concomitant]
  5. MYLANTA (MAGNESIUM HYDROXIDE, ALUMINIUM HYDROXIDE GEL, DRIED, SIMETICO [Concomitant]
  6. ZOLEDRONIC ACID [Concomitant]
  7. ALPRAZOLAM [Concomitant]
  8. SERTRALINE HYDROCHLORIDE [Concomitant]
  9. METOPROLOL TARTRATE [Concomitant]
  10. ENALAPRIL MALEATE [Concomitant]
  11. LOPERAMIDE (LOPERAMIDE) [Concomitant]
  12. DYAZIDE [Concomitant]
  13. PROCRIT [Concomitant]
  14. NEXIUM [Concomitant]
  15. CAPECITABINE (CAPECITAHINE)(1200 MILLIGRAM) [Concomitant]

REACTIONS (8)
  - BACTERIAL INFECTION [None]
  - BLOOD CULTURE POSITIVE [None]
  - HAEMOGLOBIN DECREASED [None]
  - INCORRECT DOSE ADMINISTERED [None]
  - LOSS OF CONSCIOUSNESS [None]
  - MENTAL STATUS CHANGES [None]
  - PROTEUS INFECTION [None]
  - URINARY TRACT INFECTION [None]
